FAERS Safety Report 22003320 (Version 1)
Quarter: 2023Q1

REPORT INFORMATION
  Report Type: Spontaneous
  Country: US (occurrence: US)
  Receive Date: 20230217
  Receipt Date: 20230217
  Transmission Date: 20230417
  Serious: Yes (Death, Hospitalization)
  Sender: FDA-Public Use
  Company Number: US-AVET LIFESCIENCES LTD-2023-AVET-000043

PATIENT
  Age: 36 Year
  Sex: Female

DRUGS (5)
  1. ACETAMINOPHEN [Suspect]
     Active Substance: ACETAMINOPHEN
     Dosage: 80 PILLS OF ACETAMINOPHEN IN THE PAST FEW DAYS
  2. CETIRIZINE HYDROCHLORIDE\PSEUDOEPHEDRINE HYDROCHLORIDE [Concomitant]
     Active Substance: CETIRIZINE HYDROCHLORIDE\PSEUDOEPHEDRINE HYDROCHLORIDE
  3. FAMOTIDINE [Concomitant]
     Active Substance: FAMOTIDINE
  4. FLUTICASONE [Concomitant]
     Active Substance: FLUTICASONE
  5. PAROXETINE [Concomitant]
     Active Substance: PAROXETINE

REACTIONS (10)
  - Overdose [Fatal]
  - Acute hepatic failure [Fatal]
  - Toxicity to various agents [Fatal]
  - Hepatic encephalopathy [Fatal]
  - Acute kidney injury [Fatal]
  - Pulmonary oedema [Fatal]
  - Blood lactic acid increased [Fatal]
  - Sinus tachycardia [Fatal]
  - Acidosis [Fatal]
  - Sepsis [Fatal]
